FAERS Safety Report 13641667 (Version 2)
Quarter: 2017Q2

REPORT INFORMATION
  Report Type: Spontaneous
  Country: IT (occurrence: IT)
  Receive Date: 20170612
  Receipt Date: 20170621
  Transmission Date: 20170830
  Serious: Yes (Hospitalization)
  Sender: FDA-Public Use
  Company Number: IT-ALVOGEN-2017-ALVOGEN-092359

PATIENT
  Age: 79 Year
  Sex: Female

DRUGS (3)
  1. TENORETIC [Suspect]
     Active Substance: ATENOLOL\CHLORTHALIDONE
     Indication: HYPERTENSION
     Dosage: 50 MG/12.5 MG
     Route: 048
     Dates: start: 20160101, end: 20170510
  2. LASIX [Suspect]
     Active Substance: FUROSEMIDE
     Indication: HYPERTENSION
     Dosage: 1 DOSAGE UNIT/EVERY OTHER DAYS
     Route: 048
     Dates: start: 20150101, end: 20170510
  3. LUMIGAN [Concomitant]
     Active Substance: BIMATOPROST
     Indication: PRODUCT USED FOR UNKNOWN INDICATION
     Dosage: 0.1 MG/ML SOLUTION

REACTIONS (2)
  - Long QT syndrome [Recovered/Resolved]
  - Hypokalaemia [Recovered/Resolved]

NARRATIVE: CASE EVENT DATE: 20170203
